FAERS Safety Report 10761450 (Version 1)
Quarter: 2015Q1

REPORT INFORMATION
  Report Type: Spontaneous
  Country: US (occurrence: None)
  Receive Date: 20150203
  Receipt Date: 20150203
  Transmission Date: 20150721
  Serious: Yes (Disabling, Other)
  Sender: FDA-Public Use
  Company Number: None

PATIENT
  Age: 58 Year
  Sex: Female
  Weight: 81.65 kg

DRUGS (1)
  1. CLONAZEPAM 0.5 MG SANDOZ [Suspect]
     Active Substance: CLONAZEPAM
     Indication: MIGRAINE PROPHYLAXIS
     Dosage: 3 AT BEDTIME, AT BEDTIME, TAKEN BY MOUTH
     Route: 048
     Dates: start: 20150123, end: 20150131

REACTIONS (3)
  - Impaired work ability [None]
  - Product quality issue [None]
  - Drug ineffective [None]

NARRATIVE: CASE EVENT DATE: 20150123
